FAERS Safety Report 7352744-X (Version None)
Quarter: 2011Q1

REPORT INFORMATION
  Report Type: 
  Country: None (occurrence: None)
  Receive Date: 20110310
  Receipt Date: 20110310
  Transmission Date: 20110831
  Serious: Yes (Other)
  Sender: FDA-Public Use
  Company Number: None

PATIENT
  Sex: Female
  Weight: 140.6151 kg

DRUGS (17)
  1. SIMVASTATIN [Concomitant]
  2. ABILIFY [Concomitant]
  3. CELEBREX [Concomitant]
  4. FOLIC ACID SUPPLEMENT [Concomitant]
  5. METHIMAZOLE [Concomitant]
  6. ASPIRIN [Concomitant]
  7. LISINOPRIL [Concomitant]
  8. LAMOTRIGINE [Suspect]
     Indication: NO THERAPEUTIC RESPONSE
     Dosage: 150 MG TABLET TWICE DAILY PO
     Route: 048
     Dates: start: 20101001, end: 20110221
  9. LAMOTRIGINE [Suspect]
     Indication: DEPRESSION
     Dosage: 150 MG TABLET TWICE DAILY PO
     Route: 048
     Dates: start: 20101001, end: 20110221
  10. VICTOZA PEN [Concomitant]
  11. METFORMIN [Concomitant]
  12. CHELATED CALCIUM MAGNESIUM SUPPLEMENT [Concomitant]
  13. GLYBURIDE [Concomitant]
  14. NEXIUM [Concomitant]
  15. MULTI-VITAMIN [Concomitant]
  16. VITAMIN D [Concomitant]
  17. BUSPAR [Concomitant]

REACTIONS (4)
  - ABDOMINAL DISCOMFORT [None]
  - ABDOMINAL PAIN UPPER [None]
  - RETCHING [None]
  - NAUSEA [None]
